FAERS Safety Report 5772468-X (Version None)
Quarter: 2008Q2

REPORT INFORMATION
  Report Type: 
  Country: None (occurrence: None)
  Receive Date: 20080613
  Receipt Date: 20080604
  Transmission Date: 20081010
  Serious: Yes (Hospitalization)
  Sender: FDA-Public Use
  Company Number: US-ELI_LILLY_AND_COMPANY-US200806001014

PATIENT
  Sex: Female

DRUGS (1)
  1. HUMALOG MIX 50/50 [Suspect]
     Dosage: UNK, UNK
     Dates: start: 20080401

REACTIONS (1)
  - HOSPITALISATION [None]
